FAERS Safety Report 10158408 (Version 1)
Quarter: 2014Q2

REPORT INFORMATION
  Report Type: Spontaneous
  Country: US (occurrence: US)
  Receive Date: 20140507
  Receipt Date: 20140507
  Transmission Date: 20141212
  Serious: Yes (Death, Other)
  Sender: FDA-Public Use
  Company Number: US-TAKEDA-2014TUS003645

PATIENT
  Age: 79 Year
  Sex: Female

DRUGS (13)
  1. FEBUXOSTAT [Suspect]
     Dosage: 40 MG, UNK
  2. DICLOFENAC [Concomitant]
  3. FLAGYL                             /00012501/ [Concomitant]
     Dosage: UNK
  4. PARACETAMOL [Concomitant]
  5. CLOPIDOGREL [Concomitant]
  6. ESOMEPRAZOL                        /01479301/ [Concomitant]
  7. WARFARIN [Concomitant]
  8. ESCITALOPRAM [Concomitant]
  9. CLONAZEPAM [Concomitant]
  10. SIMVASTATIN [Concomitant]
  11. CANDESARTAN [Concomitant]
  12. METOPROLOL [Concomitant]
  13. FUROSEMIDE [Concomitant]

REACTIONS (1)
  - Cardiac failure [Fatal]
